FAERS Safety Report 6015005-7 (Version None)
Quarter: 2008Q4

REPORT INFORMATION
  Report Type: 
  Country: None (occurrence: None)
  Receive Date: 20081219
  Receipt Date: 20081216
  Transmission Date: 20090506
  Serious: Yes (Other)
  Sender: FDA-Public Use
  Company Number: US-ALLERGAN-0815978US

PATIENT
  Sex: Female

DRUGS (1)
  1. TAZORAC [Suspect]
     Indication: NEOPLASM PROPHYLAXIS
     Dosage: UNK, BI-WEEKLY
     Route: 061
     Dates: start: 20000101

REACTIONS (2)
  - INSOMNIA [None]
  - RESORPTION BONE INCREASED [None]
